FAERS Safety Report 4305874-0 (Version None)
Quarter: 2004Q1

REPORT INFORMATION
  Report Type: 
  Country: None (occurrence: None)
  Receive Date: 20040226
  Receipt Date: 20040218
  Transmission Date: 20041129
  Serious: Yes (Hospitalization)
  Sender: FDA-Public Use
  Company Number: WAES 0402GRC00009

PATIENT
  Age: 3 Year
  Sex: Male

DRUGS (4)
  1. AMIKACIN [Concomitant]
  2. CEFTAZIDIME [Concomitant]
  3. DECADRON [Suspect]
     Indication: ACUTE LYMPHOCYTIC LEUKAEMIA
     Route: 048
  4. TEICOPLANIN [Concomitant]

REACTIONS (9)
  - ALANINE AMINOTRANSFERASE INCREASED [None]
  - ASPARTATE AMINOTRANSFERASE INCREASED [None]
  - BLOOD BILIRUBIN INCREASED [None]
  - JAUNDICE [None]
  - MUSCULAR WEAKNESS [None]
  - MYOPATHY [None]
  - PANCYTOPENIA [None]
  - PARONYCHIA [None]
  - STREPTOCOCCAL BACTERAEMIA [None]
